FAERS Safety Report 18452999 (Version 1)
Quarter: 2020Q4

REPORT INFORMATION
  Report Type: Spontaneous
  Country: US (occurrence: US)
  Receive Date: 20201102
  Receipt Date: 20201102
  Transmission Date: 20210114
  Serious: No
  Sender: FDA-Public Use
  Company Number: US-LUPIN PHARMACEUTICALS INC.-2020-05911

PATIENT
  Age: 3 Decade
  Sex: Female
  Weight: 68 kg

DRUGS (15)
  1. BUPIVACAINE. [Suspect]
     Active Substance: BUPIVACAINE
     Dosage: 56.25?MG UNK
     Route: 037
  2. FENTANYL. [Suspect]
     Active Substance: FENTANYL
     Dosage: 80 MICROGRAM UNK
     Route: 042
  3. MIDAZOLAM. [Suspect]
     Active Substance: MIDAZOLAM
     Indication: ANXIETY
     Dosage: 1 MILLIGRAM UNK
     Route: 065
  4. FENTANYL. [Suspect]
     Active Substance: FENTANYL
     Indication: SPINAL ANAESTHESIA
     Dosage: 20 MICROGRAM UNK
     Route: 037
  5. MORPHINE [Suspect]
     Active Substance: MORPHINE
     Dosage: 200 MICROGAM UNK
     Route: 037
  6. BUPIVACAINE. [Suspect]
     Active Substance: BUPIVACAINE
     Dosage: 0.75% UNK (BUPIVACAINE (0.5?ML)).
     Route: 037
  7. LIDOCAINE. [Suspect]
     Active Substance: LIDOCAINE
     Dosage: 3 MIILILITER UNK (OF 1 % LIDOCAINE)
     Route: 058
  8. BUPIVACAINE. [Suspect]
     Active Substance: BUPIVACAINE
     Indication: SPINAL ANAESTHESIA
     Dosage: 1 MILLILITER UNK
     Route: 037
  9. PHENYLEPHRINE [Suspect]
     Active Substance: PHENYLEPHRINE HYDROCHLORIDE
     Indication: BLOOD PRESSURE MANAGEMENT
     Dosage: 0.3 MICROGRAM/KILOGRAM
     Route: 065
  10. LIDOCAINE. [Suspect]
     Active Substance: LIDOCAINE
     Indication: SPINAL ANAESTHESIA
     Dosage: 2 MIILILITER UNK (OF 1 % LIDOCAINE)
     Route: 058
  11. KETAMINE [Concomitant]
     Active Substance: KETAMINE
     Indication: PAIN
     Dosage: UNK
     Route: 065
  12. MORPHINE [Suspect]
     Active Substance: MORPHINE
     Indication: SPINAL ANAESTHESIA
     Dosage: 100 MICROGAM UNK
     Route: 037
  13. FENTANYL. [Suspect]
     Active Substance: FENTANYL
     Dosage: 60 MICROGRAM UNK
     Route: 042
  14. BUPIVACAINE. [Suspect]
     Active Substance: BUPIVACAINE
     Dosage: 1 ML OF 0.75% BUPIVACAINE WAS ADMINISTERED IN DIVIDED DOSES.
     Route: 037
  15. BUPIVACAINE. [Suspect]
     Active Substance: BUPIVACAINE
     Dosage: 2 ML OF 0.75% BUPIVACAINE WAS ADMINISTERED IN 0.5 ML INCREMENTS
     Route: 037

REACTIONS (2)
  - Maternal exposure during pregnancy [Unknown]
  - Normal newborn [Unknown]
